FAERS Safety Report 4858917-X (Version None)
Quarter: 2005Q4

REPORT INFORMATION
  Report Type: 
  Country: None (occurrence: None)
  Receive Date: 20051219
  Receipt Date: 20050825
  Transmission Date: 20060501
  Serious: No
  Sender: FDA-Public Use
  Company Number: US-GLAXOSMITHKLINE-A0571799A

PATIENT
  Age: 58 Year
  Sex: Female

DRUGS (1)
  1. EQUATE NTS 21MG [Suspect]
     Dates: start: 20050824, end: 20050825

REACTIONS (6)
  - ABNORMAL DREAMS [None]
  - ASTHENIA [None]
  - DISTURBANCE IN ATTENTION [None]
  - DYSGEUSIA [None]
  - INSOMNIA [None]
  - NAUSEA [None]
